FAERS Safety Report 16320437 (Version 1)
Quarter: 2019Q2

REPORT INFORMATION
  Report Type: Spontaneous
  Country: US (occurrence: US)
  Receive Date: 20190516
  Receipt Date: 20190516
  Transmission Date: 20190711
  Serious: No
  Sender: FDA-Public Use
  Company Number: US-PFIZER INC-2019205755

PATIENT
  Age: 70 Year
  Sex: Female
  Weight: 122.4 kg

DRUGS (3)
  1. NIACIN. [Concomitant]
     Active Substance: NIACIN
     Dosage: UNK, TWO TIMES A DAY [100 MG TO BE BROKEN IN HALF]
  2. LYRICA [Suspect]
     Active Substance: PREGABALIN
     Indication: FIBROMYALGIA
     Dosage: 50 MG, ONCE A DAY
     Dates: start: 2015
  3. GABAPENTIN. [Concomitant]
     Active Substance: GABAPENTIN
     Dosage: UNK

REACTIONS (2)
  - Back pain [Unknown]
  - Neuralgia [Unknown]

NARRATIVE: CASE EVENT DATE: 201811
